FAERS Safety Report 14837514 (Version 1)
Quarter: 2018Q2

REPORT INFORMATION
  Report Type: Spontaneous
  Country: ES (occurrence: ES)
  Receive Date: 20180502
  Receipt Date: 20180502
  Transmission Date: 20180711
  Serious: Yes (Other)
  Sender: FDA-Public Use
  Company Number: PHHY2017ES202829

PATIENT
  Age: 17 Year
  Sex: Male

DRUGS (3)
  1. PREDNISONE. [Suspect]
     Active Substance: PREDNISONE
     Indication: POLYARTERITIS NODOSA
     Dosage: UNK
     Route: 065
  2. CYCLOPHOSPHAMIDE. [Concomitant]
     Active Substance: CYCLOPHOSPHAMIDE
     Indication: PRODUCT USED FOR UNKNOWN INDICATION
     Route: 065
  3. AZATHIOPRINE. [Suspect]
     Active Substance: AZATHIOPRINE
     Indication: POLYARTERITIS NODOSA
     Route: 048

REACTIONS (9)
  - Abdominal pain [Unknown]
  - Renal aneurysm [Unknown]
  - Neurological symptom [Unknown]
  - Hepatic artery aneurysm [Unknown]
  - Rebound effect [Unknown]
  - Mesenteric artery aneurysm [Unknown]
  - Arterial stenosis [Unknown]
  - Polyarteritis nodosa [Unknown]
  - Herpes zoster [Unknown]
